FAERS Safety Report 24194420 (Version 1)
Quarter: 2024Q3

REPORT INFORMATION
  Report Type: Spontaneous
  Country: US (occurrence: None)
  Receive Date: 20240808
  Receipt Date: 20240808
  Transmission Date: 20241017
  Serious: Yes (Life-Threatening, Hospitalization, Other)
  Sender: Public
  Company Number: None

PATIENT
  Age: 28 Year
  Sex: Female
  Weight: 73 kg

DRUGS (1)
  1. DROPERIDOL [Suspect]
     Active Substance: DROPERIDOL
     Indication: Cannabinoid hyperemesis syndrome
     Dosage: FREQUENCY : AS NEEDED;?
     Route: 040
     Dates: start: 20240406, end: 20240406

REACTIONS (5)
  - Unresponsive to stimuli [None]
  - Cyanosis [None]
  - Pulse absent [None]
  - Cardiac arrest [None]
  - Electrocardiogram QT prolonged [None]

NARRATIVE: CASE EVENT DATE: 20240406
